FAERS Safety Report 18411075 (Version 1)
Quarter: 2020Q4

REPORT INFORMATION
  Report Type: Spontaneous
  Country: IT (occurrence: IT)
  Receive Date: 20201021
  Receipt Date: 20201021
  Transmission Date: 20210114
  Serious: Yes (Other)
  Sender: FDA-Public Use
  Company Number: IT-AKCEA THERAPEUTICS-2020IS001532

PATIENT
  Age: 68 Year
  Sex: Male
  Weight: 85.18 kg

DRUGS (10)
  1. TEGSEDI [Suspect]
     Active Substance: INOTERSEN SODIUM
     Indication: HEREDITARY NEUROPATHIC AMYLOIDOSIS
     Route: 058
     Dates: start: 20191216, end: 20200904
  2. LYRICA [Concomitant]
     Active Substance: PREGABALIN
     Route: 048
  3. LUVION /00252501/ [Concomitant]
     Active Substance: CANRENOIC ACID
     Route: 048
  4. XARELTO [Concomitant]
     Active Substance: RIVAROXABAN
     Route: 048
  5. ATORVASTATINA EG [Concomitant]
     Route: 048
  6. ISSD (INTEGRATED SYRINGE SAFETY DEVICE) [Suspect]
     Active Substance: DEVICE
  7. LANOXIN [Concomitant]
     Active Substance: DIGOXIN
     Route: 048
  8. CONGESCOR [Concomitant]
     Active Substance: BISOPROLOL
     Route: 048
  9. PANTORC [Concomitant]
     Active Substance: PANTOPRAZOLE SODIUM
     Route: 048
  10. TRIATEC /00116401/ [Concomitant]
     Active Substance: ACETAMINOPHEN\CODEINE PHOSPHATE
     Route: 048

REACTIONS (3)
  - Proteinuria [Unknown]
  - Glomerular filtration rate decreased [Unknown]
  - Blood creatine increased [Unknown]

NARRATIVE: CASE EVENT DATE: 20200804
